FAERS Safety Report 4886769-0 (Version None)
Quarter: 2005Q4

REPORT INFORMATION
  Report Type: 
  Country: None (occurrence: None)
  Receive Date: 20051220
  Receipt Date: 20050420
  Transmission Date: 20060501
  Serious: Yes (Other)
  Sender: FDA-Public Use
  Company Number: HQ2454724MAY2002

PATIENT
  Age: 74 Year
  Sex: Male
  Weight: 77.18 kg

DRUGS (2)
  1. EFFEXOR XR [Suspect]
     Indication: DEPRESSION
     Dosage: 112.5 MG 1X PER 1 DAY, ORAL
     Route: 047
     Dates: start: 20020225, end: 20020411
  2. EFFEXOR XR [Suspect]
     Indication: DEPRESSION
     Dosage: 112.5 MG 1X PER 1 DAY, ORAL
     Route: 047
     Dates: start: 20020511, end: 20020521

REACTIONS (2)
  - LYMPHOCYTE COUNT INCREASED [None]
  - WHITE BLOOD CELL COUNT INCREASED [None]
